FAERS Safety Report 8095178-5 (Version None)
Quarter: 2012Q1

REPORT INFORMATION
  Report Type: 
  Country: None (occurrence: None)
  Receive Date: 20120125
  Receipt Date: 20120110
  Transmission Date: 20120608
  Serious: Yes (Other)
  Sender: FDA-Public Use
  Company Number: US-1189118

PATIENT
  Sex: Female
  Weight: 94.3482 kg

DRUGS (7)
  1. BSS [Suspect]
  2. POVIDONE IODINE [Concomitant]
  3. TETRACAINE POLYGYL STERILE OPHTHALMIC SOLUTION [Suspect]
     Indication: CATARACT OPERATION
     Dosage: (OPHTHALMIC)
     Route: 047
     Dates: start: 20111026, end: 20111026
  4. PREDNISOLONE ACETATE [Suspect]
     Indication: CATARACT OPERATION
     Dosage: (OPHTHALMIC)
     Route: 047
  5. ZYMAXID [Suspect]
     Indication: CATARACT OPERATION
     Dosage: (OPHTHALMIC)
     Route: 047
  6. BSS [Suspect]
     Indication: CATARACT OPERATION
     Dosage: (INTRAOCULAR) ; (INTRAOCULAR)
     Route: 031
     Dates: start: 20111026, end: 20111026
  7. NEVANAC [Suspect]
     Indication: CATARACT OPERATION
     Dosage: (OPHTHALMIC)
     Route: 047

REACTIONS (3)
  - OFF LABEL USE [None]
  - TOXIC ANTERIOR SEGMENT SYNDROME [None]
  - POST PROCEDURAL INFECTION [None]
